FAERS Safety Report 23415618 (Version 1)
Quarter: 2024Q1

REPORT INFORMATION
  Report Type: Report from Study
  Country: US (occurrence: US)
  Receive Date: 20240118
  Receipt Date: 20240118
  Transmission Date: 20240410
  Serious: Yes (Other)
  Sender: FDA-Public Use
  Company Number: US-ABBVIE-5479167

PATIENT
  Age: 61 Year
  Sex: Female
  Weight: 52.616 kg

DRUGS (1)
  1. SKYRIZI [Suspect]
     Active Substance: RISANKIZUMAB-RZAA
     Indication: Crohn^s disease
     Dosage: FREQUENCY TEXT: Q3
     Route: 058
     Dates: start: 20221215

REACTIONS (6)
  - Intestinal obstruction [Unknown]
  - Postoperative adhesion [Recovered/Resolved]
  - Abdominal adhesions [Unknown]
  - Abdominal pain [Unknown]
  - Nausea [Unknown]
  - Vomiting [Unknown]

NARRATIVE: CASE EVENT DATE: 20230930
